FAERS Safety Report 10193249 (Version 2)
Quarter: 2016Q2

REPORT INFORMATION
  Report Type: Spontaneous
  Country: US (occurrence: US)
  Receive Date: 20140524
  Receipt Date: 20160524
  Transmission Date: 20160815
  Serious: No
  Sender: FDA-Public Use
  Company Number: US-SA-2013SA111073

PATIENT
  Age: 57 Year
  Sex: Male

DRUGS (3)
  1. LANTUS SOLOSTAR [Suspect]
     Active Substance: INSULIN GLARGINE
     Indication: TYPE 2 DIABETES MELLITUS
     Dosage: DOSE:100 UNIT(S)
     Route: 065
     Dates: start: 201501, end: 20150514
  2. LANTUS SOLOSTAR [Suspect]
     Active Substance: INSULIN GLARGINE
     Indication: TYPE 2 DIABETES MELLITUS
     Dosage: TAKEN FROM:1 WEEK AGO DOSE:135 UNIT(S)
     Route: 058
     Dates: end: 2012
  3. SOLOSTAR [Concomitant]
     Active Substance: DEVICE
     Indication: TYPE 2 DIABETES MELLITUS
     Dates: end: 20131027

REACTIONS (5)
  - Swelling [Unknown]
  - Drug administration error [Unknown]
  - Urticaria [Unknown]
  - Dyspnoea [Unknown]
  - Injection site pain [Unknown]

NARRATIVE: CASE EVENT DATE: 2012
